FAERS Safety Report 7218027-3 (Version None)
Quarter: 2011Q1

REPORT INFORMATION
  Report Type: 
  Country: None (occurrence: None)
  Receive Date: 20110110
  Receipt Date: 20110105
  Transmission Date: 20110831
  Serious: Yes (Other)
  Sender: FDA-Public Use
  Company Number: JP-WATSON-2010-15051

PATIENT
  Age: 50 Year
  Sex: Male

DRUGS (4)
  1. FLUOROURACIL [Suspect]
     Dosage: 2400 MG/M2, INFUSION
     Route: 042
  2. FLUOROURACIL [Suspect]
     Dosage: 2400 MG/M2, INFUSION
     Route: 042
  3. FLUOROURACIL [Suspect]
     Dosage: 400 MG/M2, BOLUS
     Route: 042
  4. FLUOROURACIL [Suspect]
     Indication: COLON CANCER
     Dosage: 400 MG/M2, BOLUS
     Route: 042
     Dates: start: 20090201

REACTIONS (2)
  - HYPERAMMONAEMIC ENCEPHALOPATHY [None]
  - COGNITIVE DISORDER [None]
